FAERS Safety Report 11173484 (Version 1)
Quarter: 2015Q2

REPORT INFORMATION
  Report Type: Spontaneous
  Country: ES (occurrence: ES)
  Receive Date: 20150609
  Receipt Date: 20150609
  Transmission Date: 20150821
  Serious: Yes (Life-Threatening, Other)
  Sender: FDA-Public Use
  Company Number: ES-JNJFOC-20150519497

PATIENT

DRUGS (9)
  1. DICLOFENAC [Suspect]
     Active Substance: DICLOFENAC
     Indication: ANKYLOSING SPONDYLITIS
     Route: 065
  2. DICLOFENAC [Suspect]
     Active Substance: DICLOFENAC
     Indication: RHEUMATOID ARTHRITIS
     Route: 065
  3. DICLOFENAC [Suspect]
     Active Substance: DICLOFENAC
     Indication: OSTEOARTHRITIS
     Route: 065
  4. IBUPROFEN. [Suspect]
     Active Substance: IBUPROFEN
     Indication: OSTEOARTHRITIS
     Route: 065
  5. IBUPROFEN. [Suspect]
     Active Substance: IBUPROFEN
     Indication: RHEUMATOID ARTHRITIS
     Route: 065
  6. IBUPROFEN. [Suspect]
     Active Substance: IBUPROFEN
     Indication: ANKYLOSING SPONDYLITIS
     Route: 065
  7. NAPROXEN. [Suspect]
     Active Substance: NAPROXEN
     Indication: ANKYLOSING SPONDYLITIS
     Route: 065
  8. NAPROXEN. [Suspect]
     Active Substance: NAPROXEN
     Indication: RHEUMATOID ARTHRITIS
     Route: 065
  9. NAPROXEN. [Suspect]
     Active Substance: NAPROXEN
     Indication: OSTEOARTHRITIS
     Route: 065

REACTIONS (43)
  - Intestinal obstruction [Unknown]
  - Pneumonia [Unknown]
  - Clostridium difficile infection [Unknown]
  - Intracardiac thrombus [Unknown]
  - Oesophageal perforation [Unknown]
  - Melaena [Unknown]
  - Gastric ulcer perforation [Unknown]
  - Gastric ulcer haemorrhage [Unknown]
  - Regurgitation [Unknown]
  - Diverticulitis [Unknown]
  - Oesophagitis [Unknown]
  - Chest pain [Unknown]
  - Anaemia [Unknown]
  - Mucosal haemorrhage [Unknown]
  - Transient ischaemic attack [Unknown]
  - Angina unstable [Unknown]
  - Peptic ulcer [Unknown]
  - Rectal haemorrhage [Unknown]
  - Off label use [Unknown]
  - Duodenitis [Unknown]
  - Oesophageal ulcer [Unknown]
  - Oesophageal haemorrhage [Unknown]
  - Oesophageal ulcer haemorrhage [Unknown]
  - Duodenal ulcer perforation [Unknown]
  - Abdominal pain [Unknown]
  - Hiatus hernia [Unknown]
  - Gastric ulcer [Unknown]
  - Duodenal ulcer [Unknown]
  - Intestinal ulcer [Unknown]
  - Intestinal ulcer perforation [Unknown]
  - Peptic ulcer perforation [Unknown]
  - Vomiting [Unknown]
  - Diarrhoea [Unknown]
  - Gastritis [Unknown]
  - Duodenal ulcer haemorrhage [Unknown]
  - Osteoporosis [Unknown]
  - Myocardial infarction [Unknown]
  - Cardiac arrest [Unknown]
  - Haematemesis [Unknown]
  - Ischaemic stroke [Unknown]
  - Renal failure [Unknown]
  - Dyspepsia [Unknown]
  - Nausea [Unknown]
